FAERS Safety Report 7720218-X (Version None)
Quarter: 2011Q3

REPORT INFORMATION
  Report Type: 
  Country: None (occurrence: None)
  Receive Date: 20110831
  Receipt Date: 20110823
  Transmission Date: 20111222
  Serious: Yes (Death, Hospitalization)
  Sender: FDA-Public Use
  Company Number: US-CELGENEUS-163-21880-11082848

PATIENT
  Sex: Female
  Weight: 153.91 kg

DRUGS (39)
  1. CITALOPRAM [Concomitant]
     Dosage: 40 MILLIGRAM
     Route: 065
  2. MULTI-VITAMINS [Concomitant]
     Route: 048
  3. COQ10 [Concomitant]
     Dosage: 100 MILLIGRAM
     Route: 048
  4. REVLIMID [Suspect]
     Indication: MULTIPLE MYELOMA
     Dosage: 25 MILLIGRAM
     Route: 048
     Dates: start: 20110318
  5. CARVEDILOL [Concomitant]
     Dosage: 12.5 MILLIGRAM
     Route: 065
  6. FLUTICASONE PROPIONATE [Concomitant]
     Dosage: 50 MICROGRAM
     Route: 065
  7. CEFEPIME [Concomitant]
     Indication: PNEUMONIA
     Route: 041
     Dates: start: 20110501
  8. ASPIRIN [Concomitant]
     Dosage: 325 MILLIGRAM
     Route: 065
  9. VITAMIN D [Concomitant]
     Dosage: 4000 UNITS
     Route: 048
  10. OMEPRAZOLE MAGNESIUM [Concomitant]
     Dosage: 20 MILLIGRAM
     Route: 048
  11. SPIRONOLACTONE [Concomitant]
     Dosage: 25 MILLIGRAM
     Route: 048
  12. FLUCONAZOLE [Concomitant]
     Dosage: 200 MILLIGRAM
     Route: 048
  13. MAGNESIUM HYDROXIDE [Concomitant]
     Dosage: 8 PERCENT
     Route: 048
  14. NITROGLYCERIN [Concomitant]
     Dosage: .4 MILLIGRAM
     Route: 065
  15. MELPHALAN [Concomitant]
     Route: 065
     Dates: start: 20110101
  16. BUMETANIDE [Concomitant]
     Dosage: 2 MILLIGRAM
     Route: 065
  17. INSULIN DETEMIR [Concomitant]
     Dosage: 100 UNITS
     Route: 065
  18. PRAMIPEXOLE DIHYDROCHLORIDE [Concomitant]
     Dosage: .25 MILLIGRAM
     Route: 065
  19. MONTELUKAST SODIUM [Concomitant]
     Dosage: 10 MILLIGRAM
     Route: 065
  20. WHITE PETROLATUM-MINERAL OIL [Concomitant]
     Route: 065
  21. VANCOMYCIN [Concomitant]
     Indication: PNEUMONIA
     Route: 041
     Dates: start: 20110501
  22. GUAIFENESIN [Concomitant]
     Dosage: 600 MILLIGRAM
     Route: 048
  23. MELATONIN [Concomitant]
     Dosage: 3 MILLIGRAM
     Route: 048
  24. FLUTICASONE PROPIONATE/SALMETEROL [Concomitant]
     Dosage: 500 MICROGRAM
     Route: 065
  25. VALSARTAN [Concomitant]
     Dosage: 80 MILLIGRAM
     Route: 065
  26. FISH OIL [Concomitant]
     Dosage: 300 MILLIGRAM
     Route: 048
  27. ZOLPIDEM [Concomitant]
     Dosage: 5 MILLIGRAM
     Route: 048
  28. PREDNISONE [Concomitant]
     Route: 065
     Dates: start: 20110101
  29. RISEDRONATE SODIUM [Concomitant]
     Dosage: 35 MILLIGRAM
     Route: 065
  30. ISOSORBIDE DINITRATE [Concomitant]
     Dosage: 40 MILLIGRAM
     Route: 065
  31. LEVOTHYROXINE SODIUM [Concomitant]
     Dosage: 137 MICROGRAM
     Route: 065
  32. CALCITONIN SALMON [Concomitant]
     Dosage: 200 UNITS
     Route: 045
  33. MAGNESIUM [Concomitant]
     Dosage: 64 MILLIGRAM
     Route: 048
  34. GABAPENTIN [Concomitant]
     Dosage: 300 MILLIGRAM
     Route: 048
  35. ACETAMINOPHEN [Concomitant]
     Dosage: 325 MILLIGRAM
     Route: 065
  36. OXYGEN [Suspect]
     Dates: start: 20110501
  37. TIOTROPIUM [Concomitant]
     Dosage: 18 MICROGRAM
     Route: 055
  38. LEVALBUTEROL HCL [Concomitant]
     Dosage: 1.25 MILLIGRAM
     Route: 065
  39. VELCADE [Concomitant]
     Route: 065

REACTIONS (3)
  - PANCYTOPENIA [None]
  - SEPTIC SHOCK [None]
  - ERYTHEMA [None]
